FAERS Safety Report 16285005 (Version 1)
Quarter: 2019Q2

REPORT INFORMATION
  Report Type: Spontaneous
  Country: FR (occurrence: FR)
  Receive Date: 20190508
  Receipt Date: 20190508
  Transmission Date: 20190711
  Serious: Yes (Death, Other)
  Sender: FDA-Public Use
  Company Number: FR-CIPLA LTD.-2019FR02875

PATIENT

DRUGS (6)
  1. NEVIRAPINE. [Suspect]
     Active Substance: NEVIRAPINE
     Dosage: UNK
     Route: 064
  2. DIDANOSINE. [Suspect]
     Active Substance: DIDANOSINE
     Dosage: UNK
     Route: 064
  3. COMBIVIR [Suspect]
     Active Substance: LAMIVUDINE\ZIDOVUDINE
     Dosage: UNK
     Route: 064
  4. EFAVIRENZ. [Suspect]
     Active Substance: EFAVIRENZ
     Dosage: UNK
     Route: 064
  5. ALUVIA [Suspect]
     Active Substance: LOPINAVIR\RITONAVIR
     Dosage: UNK
     Route: 064
  6. EMTRIVA [Suspect]
     Active Substance: EMTRICITABINE
     Dosage: UNK
     Route: 064

REACTIONS (3)
  - Brain herniation [Fatal]
  - Spina bifida [Fatal]
  - Foetal exposure during pregnancy [Unknown]
